FAERS Safety Report 5622014-6 (Version None)
Quarter: 2008Q1

REPORT INFORMATION
  Report Type: 
  Country: None (occurrence: None)
  Receive Date: 20080206
  Receipt Date: 20080121
  Transmission Date: 20080703
  Serious: Yes (Other)
  Sender: FDA-Public Use
  Company Number: 8029511

PATIENT
  Age: 28 Year
  Sex: Female

DRUGS (6)
  1. LEVETIRACETAM [Suspect]
     Indication: CONVULSION
     Dosage: 250 MG 2/D PO
     Route: 048
     Dates: start: 20060302, end: 20060401
  2. LEVETIRACETAM [Suspect]
     Indication: CONVULSION
     Dosage: 500 MG 2/D D
  3. LACTULOSE [Concomitant]
  4. MIDAZOLAM HCL [Concomitant]
  5. SENNA [Concomitant]
  6. TEGRETOL [Concomitant]

REACTIONS (4)
  - ABNORMAL BEHAVIOUR [None]
  - AGGRESSION [None]
  - CELLULITIS [None]
  - INTENTIONAL SELF-INJURY [None]
